FAERS Safety Report 6429008-1 (Version None)
Quarter: 2009Q4

REPORT INFORMATION
  Report Type: 
  Country: None (occurrence: None)
  Receive Date: 20091105
  Receipt Date: 20091027
  Transmission Date: 20100525
  Serious: Yes (Other)
  Sender: FDA-Public Use
  Company Number: US-PFIZER INC-2009269832

PATIENT
  Sex: Female
  Weight: 118.46 kg

DRUGS (15)
  1. CELEBREX [Suspect]
     Indication: ARTHRITIS
     Dosage: 200 MG, 2X/DAY
     Route: 048
     Dates: start: 20090817
  2. CELEBREX [Suspect]
     Indication: PAIN IN EXTREMITY
  3. ACETYLSALICYLIC ACID [Concomitant]
     Dosage: 81 MG, 1X/DAY
     Route: 048
     Dates: start: 20070413
  4. CALCIUM WITH VITAMIN D [Concomitant]
     Dosage: 1 TABLET TWICE DAILY
     Dates: start: 20070413
  5. CARDIZEM CD [Concomitant]
     Dosage: 360 MG, 1X/DAY
     Route: 048
     Dates: start: 20070810
  6. FISH OIL [Concomitant]
     Dosage: 500 MG, 2X/DAY
     Route: 048
     Dates: start: 20081110
  7. FUROSEMIDE [Concomitant]
     Dosage: 1-2 TABLETS, 1X/DAY
     Route: 048
     Dates: start: 20070413
  8. HYZAAR [Concomitant]
     Dosage: 100/25MG; ONCE DAILY
     Route: 048
     Dates: start: 20090814
  9. LEVOTHYROXINE [Concomitant]
     Dosage: 150 UG, 1X/DAY
     Route: 048
     Dates: start: 20070221
  10. LIPITOR [Concomitant]
     Dosage: 40 MG, 1X/DAY
     Route: 048
     Dates: start: 20090528
  11. METOPROLOL [Concomitant]
     Dosage: 100 MG, 2X/DAY
     Route: 048
     Dates: start: 20090219
  12. MULTI-VITAMINS [Concomitant]
     Dosage: 1 TABLET, DAILY
     Route: 048
     Dates: start: 20070413
  13. TYLENOL ARTHRITIS EXTENDED RELIEF [Concomitant]
     Dosage: 650 MG, 4X DAILY AS NEEDED
     Route: 048
     Dates: start: 20090107
  14. VITAMIN B-12 [Concomitant]
     Dosage: 500 UG, 1X/DAY
     Route: 048
     Dates: start: 20080804
  15. WARFARIN [Concomitant]
     Dosage: 2.5 MG, AS DIRECTED
     Route: 048
     Dates: start: 20090115

REACTIONS (7)
  - BLOOD CHOLESTEROL INCREASED [None]
  - BLOOD TRIGLYCERIDES INCREASED [None]
  - CARDIAC FAILURE CONGESTIVE [None]
  - GLUCOSE TOLERANCE IMPAIRED [None]
  - HYPERTENSION [None]
  - OSTEOPENIA [None]
  - SWELLING FACE [None]
